FAERS Safety Report 4710832-8 (Version None)
Quarter: 2005Q3

REPORT INFORMATION
  Report Type: 
  Country: None (occurrence: None)
  Receive Date: 20050711
  Receipt Date: 20050524
  Transmission Date: 20060218
  Serious: Yes (Congenital Anomaly)
  Sender: FDA-Public Use
  Company Number: US-GLAXOSMITHKLINE-A0560156B

PATIENT
  Sex: Male

DRUGS (5)
  1. LAMICTAL [Suspect]
     Indication: EPILEPSY
  2. DEPAKOTE [Suspect]
     Indication: DRUG EXPOSURE DURING PREGNANCY
  3. VALPROIC ACID [Suspect]
  4. FOLIC ACID [Concomitant]
     Indication: DRUG EXPOSURE DURING PREGNANCY
  5. PRENATAL VITAMINS [Concomitant]
     Indication: DRUG EXPOSURE DURING PREGNANCY

REACTIONS (4)
  - CAESAREAN SECTION [None]
  - DRUG EXPOSURE DURING PREGNANCY [None]
  - POLYDACTYLY [None]
  - REFUSAL OF TREATMENT BY RELATIVE [None]
